FAERS Safety Report 18861559 (Version 1)
Quarter: 2021Q1

REPORT INFORMATION
  Report Type: Other
  Country: CA (occurrence: CA)
  Receive Date: 20210209
  Receipt Date: 20210209
  Transmission Date: 20210420
  Serious: Yes (Other)
  Sender: FDA-Public Use
  Company Number: CA-CELLTRION INC.-2021CA001306

PATIENT

DRUGS (18)
  1. AMLODIPINE BESILATE [Concomitant]
     Active Substance: AMLODIPINE BESYLATE
  2. METFORMIN [Concomitant]
     Active Substance: METFORMIN HYDROCHLORIDE
  3. PREDNISONE. [Concomitant]
     Active Substance: PREDNISONE
  4. ALLOPURINOL. [Concomitant]
     Active Substance: ALLOPURINOL
  5. PERINDOPRIL [Concomitant]
     Active Substance: PERINDOPRIL
  6. AVAMYS [Concomitant]
     Active Substance: FLUTICASONE FUROATE
  7. BENADRYL [Concomitant]
     Active Substance: DIPHENHYDRAMINE HYDROCHLORIDE
     Dosage: 50.0 MILLIGRAM
     Route: 048
  8. ESTRADIOL. [Concomitant]
     Active Substance: ESTRADIOL
  9. LEFLUNOMIDE. [Concomitant]
     Active Substance: LEFLUNOMIDE
  10. METHYLPREDNISOLONE SODIUM SUCCINATE. [Concomitant]
     Active Substance: METHYLPREDNISOLONE SODIUM SUCCINATE
     Dosage: 100.0 MILLIGRAM
     Route: 065
  11. ALENDRONATE SODIUM. [Concomitant]
     Active Substance: ALENDRONATE SODIUM
  12. AZATHIOPRINE. [Concomitant]
     Active Substance: AZATHIOPRINE
  13. RITUXIMAB (UNKNOWN) [Suspect]
     Active Substance: RITUXIMAB
     Indication: GRANULOMATOSIS WITH POLYANGIITIS
     Dosage: 500.0 MILLIGRAM, 1 EVERY 5 MONTHS (DOSAGE FORM: SOLUTION FOR INFUSION)
     Route: 042
  14. RITUXIMAB (UNKNOWN) [Suspect]
     Active Substance: RITUXIMAB
     Dosage: 1000.0 MILLIGRAM
     Route: 042
  15. SYNTHROID [Concomitant]
     Active Substance: LEVOTHYROXINE SODIUM
  16. TYLENOL [Concomitant]
     Active Substance: ACETAMINOPHEN
     Dosage: 650.0 MILLIGRAM
     Route: 048
  17. CALCIUM [Concomitant]
     Active Substance: CALCIUM
  18. MEDROXYPROGESTERONE ACETATE. [Concomitant]
     Active Substance: MEDROXYPROGESTERONE ACETATE

REACTIONS (6)
  - Dyspnoea [Not Recovered/Not Resolved]
  - Blood pressure fluctuation [Not Recovered/Not Resolved]
  - Anaemia [Not Recovered/Not Resolved]
  - Off label use [Unknown]
  - Blood pressure systolic increased [Not Recovered/Not Resolved]
  - Myalgia [Not Recovered/Not Resolved]
